FAERS Safety Report 5125764-3 (Version None)
Quarter: 2006Q3

REPORT INFORMATION
  Report Type: 
  Country: None (occurrence: None)
  Receive Date: 20060814
  Receipt Date: 20051003
  Transmission Date: 20061208
  Serious: Yes (Hospitalization)
  Sender: FDA-Public Use
  Company Number: WAES 0510USA00377

PATIENT
  Age: 81 Year
  Sex: Female

DRUGS (3)
  1. INDOCIN [Suspect]
     Indication: DRUG USE FOR UNKNOWN INDICATION
     Dosage: PO
     Route: 048
  2. NAPROSYN [Concomitant]
  3. ASPIRIN [Concomitant]

REACTIONS (1)
  - GASTRITIS [None]
